FAERS Safety Report 5075352-2 (Version None)
Quarter: 2006Q3

REPORT INFORMATION
  Report Type: 
  Country: None (occurrence: None)
  Receive Date: 20060807
  Receipt Date: 20060807
  Transmission Date: 20061208
  Serious: Yes (Other)
  Sender: FDA-Public Use
  Company Number: None

PATIENT
  Age: 36 Year
  Sex: Female
  Weight: 71.6683 kg

DRUGS (1)
  1. CAMILA [Suspect]
     Indication: CONTRACEPTION
     Dates: start: 20060721, end: 20060804

REACTIONS (2)
  - HAEMORRHAGE [None]
  - HEADACHE [None]
